FAERS Safety Report 12904869 (Version 17)
Quarter: 2020Q3

REPORT INFORMATION
  Report Type: Spontaneous
  Country: US (occurrence: US)
  Receive Date: 20161102
  Receipt Date: 20200706
  Transmission Date: 20201102
  Serious: Yes (Hospitalization)
  Sender: FDA-Public Use
  Company Number: US-ACTELION-A-US2016-144841

PATIENT
  Age: 62 Year
  Sex: Female
  Weight: 86.17 kg

DRUGS (14)
  1. ADCIRCA [Concomitant]
     Active Substance: TADALAFIL
  2. LIPITOR [Concomitant]
     Active Substance: ATORVASTATIN CALCIUM
  3. METOPROLOL. [Concomitant]
     Active Substance: METOPROLOL
  4. ZETIA [Concomitant]
     Active Substance: EZETIMIBE
  5. TYVASO [Suspect]
     Active Substance: TREPROSTINIL
     Indication: PRODUCT USED FOR UNKNOWN INDICATION
     Route: 065
  6. OPSUMIT [Suspect]
     Active Substance: MACITENTAN
     Indication: PULMONARY HYPERTENSION
     Dosage: 10 MG, QD
     Route: 048
     Dates: start: 2014
  7. OPSUMIT [Suspect]
     Active Substance: MACITENTAN
     Dosage: 10 MG, QD
     Route: 048
  8. AMLODIPINE [Concomitant]
     Active Substance: AMLODIPINE BESYLATE
  9. ALLOPURINOL. [Concomitant]
     Active Substance: ALLOPURINOL
  10. LANTUS [Concomitant]
     Active Substance: INSULIN GLARGINE
  11. LEVOTHYROXINE. [Concomitant]
     Active Substance: LEVOTHYROXINE
  12. OPSUMIT [Suspect]
     Active Substance: MACITENTAN
     Dosage: 10 MG, QD
     Route: 048
     Dates: start: 20150421
  13. ELIQUIS [Concomitant]
     Active Substance: APIXABAN
  14. INSULIN [Concomitant]
     Active Substance: INSULIN NOS

REACTIONS (30)
  - Cough [Unknown]
  - Nasal disorder [Unknown]
  - Systemic lupus erythematosus [Unknown]
  - Dyspnoea exertional [Unknown]
  - Illness [Unknown]
  - Bronchitis [Unknown]
  - Throat irritation [Unknown]
  - Cholecystectomy [Unknown]
  - Weight decreased [Unknown]
  - Abdominal pain upper [Unknown]
  - Emotional distress [Unknown]
  - Hospitalisation [Unknown]
  - Coma [Unknown]
  - Tooth extraction [Unknown]
  - Feeling cold [Unknown]
  - Dizziness [Unknown]
  - Choking [Unknown]
  - Dyspnoea [Unknown]
  - Immune system disorder [Unknown]
  - Decreased appetite [Unknown]
  - Eye disorder [Unknown]
  - Rhinorrhoea [Unknown]
  - Product dose omission issue [Unknown]
  - Cholecystitis acute [Recovered/Resolved]
  - Change of bowel habit [Unknown]
  - Vision blurred [Unknown]
  - Flatulence [Unknown]
  - Headache [Unknown]
  - Vasodilatation [Unknown]
  - Fatigue [Unknown]

NARRATIVE: CASE EVENT DATE: 20161026
